FAERS Safety Report 9363385 (Version 1)
Quarter: 2013Q2

REPORT INFORMATION
  Report Type: Other
  Country: DE (occurrence: DE)
  Receive Date: 20130624
  Receipt Date: 20130624
  Transmission Date: 20140414
  Serious: Yes (Congenital Anomaly)
  Sender: FDA-Public Use
  Company Number: DE-LUPIN PHARMACEUTICALS INC.-E2B_00000969

PATIENT
  Sex: Male
  Weight: 3.77 kg

DRUGS (5)
  1. LAMOTRIGINE [Suspect]
     Indication: EPILEPSY
     Route: 064
     Dates: start: 20070403
  2. LAMOTRIGINE [Suspect]
     Route: 064
     Dates: end: 20080102
  3. FRISIUM [Suspect]
     Indication: EPILEPSY
     Route: 064
  4. FRISIUM [Suspect]
     Route: 064
  5. FOLASURE [Concomitant]
     Indication: PROPHYLAXIS OF NEURAL TUBE DEFECT
     Route: 064
     Dates: start: 20070403, end: 20080102

REACTIONS (2)
  - Ventricular septal defect [Unknown]
  - Haemangioma congenital [Unknown]
